FAERS Safety Report 7415318-8 (Version None)
Quarter: 2011Q2

REPORT INFORMATION
  Report Type: 
  Country: None (occurrence: None)
  Receive Date: 20110414
  Receipt Date: 20110408
  Transmission Date: 20111010
  Serious: Yes (Congenital Anomaly)
  Sender: FDA-Public Use
  Company Number: A0687216A

PATIENT
  Sex: Female
  Weight: 3.6 kg

DRUGS (6)
  1. REGLAN [Concomitant]
     Route: 064
  2. PRENATAL VITAMINS [Concomitant]
     Route: 064
  3. IRON SUPPLEMENT [Concomitant]
     Route: 064
  4. ERYTHROMYCIN [Concomitant]
     Route: 064
  5. RANITIDINE [Concomitant]
     Route: 064
  6. PAXIL [Suspect]
     Indication: SOCIAL PHOBIA
     Dosage: 20MG PER DAY
     Route: 064
     Dates: start: 20000901, end: 20010601

REACTIONS (4)
  - DRUG EXPOSURE DURING PREGNANCY [None]
  - ATRIAL SEPTAL DEFECT [None]
  - MATERNAL DRUGS AFFECTING FOETUS [None]
  - CARDIAC MURMUR [None]
